FAERS Safety Report 5669244-5 (Version None)
Quarter: 2008Q1

REPORT INFORMATION
  Report Type: 
  Country: None (occurrence: None)
  Receive Date: 20080313
  Receipt Date: 20080313
  Transmission Date: 20080703
  Serious: Yes (Other)
  Sender: FDA-Public Use
  Company Number: None

PATIENT
  Age: 44 Year
  Sex: Male
  Weight: 81.6475 kg

DRUGS (1)
  1. VARENICLINE 1MG VAMC [Suspect]
     Indication: SMOKING CESSATION THERAPY
     Dosage: 1 2 X DAILY PO
     Route: 048
     Dates: start: 20071217, end: 20080301

REACTIONS (3)
  - ANXIETY [None]
  - DEPRESSION [None]
  - SUICIDAL IDEATION [None]
